FAERS Safety Report 7372825-4 (Version None)
Quarter: 2011Q1

REPORT INFORMATION
  Report Type: 
  Country: None (occurrence: None)
  Receive Date: 20110324
  Receipt Date: 20110314
  Transmission Date: 20110831
  Serious: Yes (Hospitalization)
  Sender: FDA-Public Use
  Company Number: NL-MEDIMMUNE-MEDI-0012952

PATIENT
  Sex: Female
  Weight: 6.115 kg

DRUGS (2)
  1. SYNAGIS [Suspect]
     Route: 030
     Dates: start: 20110314, end: 20110314
  2. SYNAGIS [Suspect]
     Route: 030
     Dates: start: 20101027, end: 20110214

REACTIONS (3)
  - OLIGODIPSIA [None]
  - RESPIRATORY SYNCYTIAL VIRUS TEST POSITIVE [None]
  - DYSPNOEA [None]
